FAERS Safety Report 6506915-2 (Version None)
Quarter: 2009Q4

REPORT INFORMATION
  Report Type: 
  Country: None (occurrence: None)
  Receive Date: 20091221
  Receipt Date: 20091211
  Transmission Date: 20100525
  Serious: Yes (Hospitalization)
  Sender: FDA-Public Use
  Company Number: HR-JNJFOC-20091203961

PATIENT
  Sex: Female

DRUGS (7)
  1. REMICADE [Suspect]
     Route: 042
  2. REMICADE [Suspect]
     Indication: DRUG USE FOR UNKNOWN INDICATION
     Dosage: STOPPED 8 MONTHS PRIOR
     Route: 042
  3. DIMIDRIL [Concomitant]
     Indication: PREMEDICATION
  4. PARACETAMOL [Concomitant]
     Indication: PREMEDICATION
  5. IMURAN [Concomitant]
     Dosage: STARTED 20-OCT YEAR NOT PROVIDED
     Route: 048
  6. DECORTIN [Concomitant]
     Route: 048
  7. PENTASA [Concomitant]
     Route: 048

REACTIONS (5)
  - ABDOMINAL PAIN [None]
  - DERMATITIS EXFOLIATIVE [None]
  - HYPERTENSION [None]
  - INFUSION RELATED REACTION [None]
  - PRURITUS [None]
